FAERS Safety Report 10067350 (Version 1)
Quarter: 2014Q2

REPORT INFORMATION
  Report Type: Spontaneous
  Country: US (occurrence: None)
  Receive Date: 20140408
  Receipt Date: 20140408
  Transmission Date: 20141212
  Serious: Yes (Other)
  Sender: FDA-Public Use
  Company Number: None

PATIENT
  Age: 64 Year
  Sex: Female
  Weight: 88.91 kg

DRUGS (1)
  1. DILANTIN [Suspect]
     Indication: CONVULSION
     Dosage: DILANTIN 100 MG 4 CAPS PO AT BEDTIME DAILY
     Route: 048
     Dates: start: 201102, end: 20110315

REACTIONS (2)
  - Product substitution issue [None]
  - Anticonvulsant drug level below therapeutic [None]
